FAERS Safety Report 8089075-9 (Version None)
Quarter: 2012Q1

REPORT INFORMATION
  Report Type: 
  Country: None (occurrence: None)
  Receive Date: 20120128
  Receipt Date: 20110620
  Transmission Date: 20120608
  Serious: Yes (Hospitalization, Other)
  Sender: FDA-Public Use
  Company Number: US-ABBOTT-11P-163-0709986-00

PATIENT
  Sex: Male
  Weight: 88.53 kg

DRUGS (8)
  1. ARAVA [Concomitant]
     Indication: RHEUMATOID ARTHRITIS
  2. CELEBREX [Concomitant]
     Indication: RHEUMATOID ARTHRITIS
  3. HUMIRA [Suspect]
     Dates: start: 20040811
  4. FOLIC ACID [Concomitant]
     Indication: PRODUCT USED FOR UNKNOWN INDICATION
  5. HUMIRA [Suspect]
     Indication: RHEUMATOID ARTHRITIS
     Dates: start: 20040501, end: 20040811
  6. SULFASALAZINE [Concomitant]
     Indication: RHEUMATOID ARTHRITIS
     Dates: start: 20031201, end: 20040101
  7. SULFASALAZINE [Concomitant]
     Dates: start: 20050101
  8. PLAQUENIL [Concomitant]
     Indication: RHEUMATOID ARTHRITIS

REACTIONS (15)
  - STAPHYLOCOCCAL INFECTION [None]
  - MEDIASTINAL DISORDER [None]
  - SUBDURAL HAEMATOMA [None]
  - DRUG INEFFECTIVE [None]
  - DEVICE DISLOCATION [None]
  - RHEUMATOID ARTHRITIS [None]
  - EXCORIATION [None]
  - SPINAL OSTEOARTHRITIS [None]
  - DEVICE RELATED INFECTION [None]
  - ARTHRALGIA [None]
  - JAW FRACTURE [None]
  - LACERATION [None]
  - ROAD TRAFFIC ACCIDENT [None]
  - ECZEMA [None]
  - ALLERGY TO CHEMICALS [None]
